FAERS Safety Report 16879719 (Version 3)
Quarter: 2019Q4

REPORT INFORMATION
  Report Type: Spontaneous
  Country: JP (occurrence: JP)
  Receive Date: 20191003
  Receipt Date: 20191217
  Transmission Date: 20200122
  Serious: Yes (Hospitalization, Disabling, Other)
  Sender: FDA-Public Use
  Company Number: JP-PFIZER INC-2019241936

PATIENT
  Age: 87 Year
  Sex: Male

DRUGS (11)
  1. ELIQUIS [Suspect]
     Active Substance: APIXABAN
     Indication: CEREBROVASCULAR ACCIDENT PROPHYLAXIS
  2. BISOPROLOL FUMARATE. [Suspect]
     Active Substance: BISOPROLOL FUMARATE
     Indication: ATRIAL FIBRILLATION
     Dosage: 0.062 MG, 1X/DAY
     Route: 048
     Dates: start: 20170525
  3. ELIQUIS [Suspect]
     Active Substance: APIXABAN
     Indication: ISCHAEMIC STROKE
     Dosage: 2.5 MILLIGRAM, BID
     Route: 048
     Dates: start: 20170508, end: 20181210
  4. SPIRONOLACTONE. [Suspect]
     Active Substance: SPIRONOLACTONE
     Indication: CARDIAC FAILURE CONGESTIVE
     Dosage: 25 MG, 1X/DAY
     Route: 048
     Dates: start: 20181202
  5. SAMSCA [Suspect]
     Active Substance: TOLVAPTAN
     Indication: CARDIAC FAILURE CONGESTIVE
     Dosage: 3.5 MG, 1X/DAY
     Route: 048
     Dates: start: 20181125
  6. TSUKUSHI AM [Concomitant]
     Dosage: 1.3 MG, 3X/DAY
     Route: 048
     Dates: end: 20190104
  7. ELIQUIS [Suspect]
     Active Substance: APIXABAN
     Indication: ATRIAL FIBRILLATION
  8. AZOSEMIDE [Suspect]
     Active Substance: AZOSEMIDE
     Indication: CARDIAC FAILURE CONGESTIVE
     Dosage: 30 MG, 1X/DAY
     Route: 048
     Dates: start: 20181208
  9. CEREKINON [Concomitant]
     Active Substance: TRIMEBUTINE
     Dosage: 100 MG, 3X/DAY
     Route: 048
  10. CANDESARTAN. [Suspect]
     Active Substance: CANDESARTAN
     Indication: HYPERTENSION
     Dosage: 2 MG, 1X/DAY
     Route: 048
  11. ALUMINIUM HYDROXIDE GEL, DRIED [Concomitant]
     Dosage: UNK
     Route: 048

REACTIONS (3)
  - Renal impairment [Unknown]
  - Cardiac failure congestive [Unknown]
  - Pleural effusion [Unknown]

NARRATIVE: CASE EVENT DATE: 2018
